FAERS Safety Report 26060833 (Version 2)
Quarter: 2025Q4

REPORT INFORMATION
  Report Type: Spontaneous
  Country: JP (occurrence: JP)
  Receive Date: 20251118
  Receipt Date: 20251125
  Transmission Date: 20260118
  Serious: Yes (Other)
  Sender: PFIZER
  Company Number: JP-PFIZER INC-PV202500052893

PATIENT
  Age: 53 Year
  Sex: Male

DRUGS (1)
  1. ELREXFIO [Suspect]
     Active Substance: ELRANATAMAB-BCMM
     Indication: Plasma cell myeloma
     Dosage: 76 MG
     Route: 058
     Dates: start: 2024

REACTIONS (10)
  - Cytokine release syndrome [Recovered/Resolved]
  - Second primary malignancy [Unknown]
  - Lung neoplasm malignant [Unknown]
  - Leukopenia [Unknown]
  - Hypogammaglobulinaemia [Unknown]
  - Organising pneumonia [Unknown]
  - Renal disorder [Unknown]
  - Back pain [Unknown]
  - Cellulitis [Unknown]
  - Toothache [Unknown]
